FAERS Safety Report 14700761 (Version 1)
Quarter: 2018Q1

REPORT INFORMATION
  Report Type: Spontaneous
  Country: US (occurrence: US)
  Receive Date: 20180328
  Receipt Date: 20180328
  Transmission Date: 20180509
  Serious: Yes (Death)
  Sender: FDA-Public Use
  Company Number: None

PATIENT
  Age: 0 Day
  Sex: Male

DRUGS (3)
  1. SEROQUEL [Suspect]
     Active Substance: QUETIAPINE FUMARATE
     Indication: BIPOLAR DISORDER
  2. EFFEXOR [Suspect]
     Active Substance: VENLAFAXINE HYDROCHLORIDE
     Indication: BIPOLAR DISORDER
     Dosage: 0.2-2-23 WKS
  3. TRILEPTAL [Suspect]
     Active Substance: OXCARBAZEPINE

REACTIONS (3)
  - Exposure during pregnancy [None]
  - Abortion induced [None]
  - Low set ears [None]

NARRATIVE: CASE EVENT DATE: 20151231
